FAERS Safety Report 5268286-1 (Version None)
Quarter: 2007Q1

REPORT INFORMATION
  Report Type: 
  Country: None (occurrence: None)
  Receive Date: 20070314
  Receipt Date: 20070314
  Transmission Date: 20070707
  Serious: Yes (Life-Threatening, Other)
  Sender: FDA-Public Use
  Company Number: None

PATIENT
  Sex: Female
  Weight: 66.6788 kg

DRUGS (4)
  1. CELLCEPT [Suspect]
     Indication: WEGENER'S GRANULOMATOSIS
     Dosage: 500 MG  4 TAB  ORAL
     Route: 048
     Dates: start: 20070208
  2. CELLCEPT [Suspect]
  3. CELLCEPT [Suspect]
  4. CELLCEPT [Suspect]
     Indication: WEGENER'S GRANULOMATOSIS
     Dosage: 500 MG 4TAB ORAL
     Route: 048
     Dates: start: 20070306

REACTIONS (5)
  - DRUG INEFFECTIVE [None]
  - DYSPNOEA [None]
  - OTORRHOEA [None]
  - PHARMACEUTICAL PRODUCT COMPLAINT [None]
  - WHEEZING [None]
